FAERS Safety Report 9110627 (Version 1)
Quarter: 2013Q1

REPORT INFORMATION
  Report Type: Spontaneous
  Country: US (occurrence: US)
  Receive Date: 20130219
  Receipt Date: 20130219
  Transmission Date: 20140127
  Serious: No
  Sender: FDA-Public Use
  Company Number: US-BRISTOL-MYERS SQUIBB COMPANY-16420739

PATIENT
  Age: 40 Year
  Sex: Male
  Weight: 76 kg

DRUGS (8)
  1. ORENCIA [Suspect]
     Indication: RHEUMATOID ARTHRITIS
     Dosage: LAST INF:23FEB12
     Route: 042
     Dates: start: 2011
  2. FOLIC ACID [Concomitant]
  3. METHOTREXATE [Concomitant]
  4. VITAMIN D3 [Concomitant]
  5. CALCIUM [Concomitant]
  6. BABY ASPIRIN [Concomitant]
     Dosage: BABY UNS
  7. MOBIC [Concomitant]
  8. PRILOSEC [Concomitant]

REACTIONS (4)
  - Musculoskeletal pain [Not Recovered/Not Resolved]
  - Visual impairment [Unknown]
  - Local swelling [Unknown]
  - Hyperhidrosis [Recovered/Resolved]
